FAERS Safety Report 18386367 (Version 2)
Quarter: 2020Q4

REPORT INFORMATION
  Report Type: Spontaneous
  Country: BR (occurrence: BR)
  Receive Date: 20201015
  Receipt Date: 20201028
  Transmission Date: 20210114
  Serious: Yes (Life-Threatening, Hospitalization, Other)
  Sender: FDA-Public Use
  Company Number: BR-PFIZER INC-2020396399

PATIENT
  Age: 54 Year
  Sex: Male
  Weight: 75 kg

DRUGS (10)
  1. BILASTINE [Concomitant]
     Active Substance: BILASTINE
     Dosage: 20 MG, DAILY (EVERY 24H)
     Route: 048
     Dates: start: 20200307
  2. BROMOPRIDE [Concomitant]
     Active Substance: BROMOPRIDE
     Dosage: 10 MG, 3X/DAY (EVERY 8 H)
     Route: 042
     Dates: start: 20200223
  3. NORTRIPTYLINE [Suspect]
     Active Substance: NORTRIPTYLINE
     Dosage: 25 MG, DAILY (EVERY 24H)
     Route: 048
     Dates: start: 20200306
  4. DIMENHYDRINATE. [Concomitant]
     Active Substance: DIMENHYDRINATE
     Dosage: 10 ML, 3X/DAY (EVERY 8H)
     Route: 042
     Dates: start: 20200212
  5. NICOTINE. [Concomitant]
     Active Substance: NICOTINE
     Dosage: 14 MG, DAILY (EVERY 24H)
     Route: 062
     Dates: start: 20200131
  6. VANCOMYCIN [Suspect]
     Active Substance: VANCOMYCIN
     Dosage: 1000 MG, 2X/DAY (EVERY 12H)
     Route: 042
     Dates: start: 20200210
  7. LYRICA [Suspect]
     Active Substance: PREGABALIN
     Indication: ANXIETY
     Dosage: 75 MG, 2X/DAY (12/12H)
     Route: 048
     Dates: start: 20200301, end: 20200310
  8. DIPYRONE [Concomitant]
     Active Substance: DIPYRONE
     Dosage: 1000 MG, 4X/DAY (EVERY 6H)
     Route: 042
     Dates: start: 20200203
  9. MEROPENEM. [Suspect]
     Active Substance: MEROPENEM
     Dosage: 1000 MG, 3X/DAY (EVERY 8 H)
     Route: 042
     Dates: start: 20200219
  10. ENOXAPARIN [Concomitant]
     Active Substance: ENOXAPARIN
     Dosage: 40 MG, DAILY (EVERY 24H)
     Route: 058
     Dates: start: 20200204

REACTIONS (3)
  - Abdominal discomfort [Unknown]
  - Abdominal pain [Unknown]
  - Drug reaction with eosinophilia and systemic symptoms [Recovered/Resolved]

NARRATIVE: CASE EVENT DATE: 20200307
